FAERS Safety Report 6050058 (Version 2)
Quarter: 2013Q3

REPORT INFORMATION
  Report Type: Spontaneous
  Country: KP (occurrence: None)
  Receive Date: 20060508
  Receipt Date: 20130823
  Transmission Date: 20140515
  Serious: Yes (Other)
  Sender: FDA-Public Use
  Company Number: 2006US-02146

PATIENT
  Age: 24 Year
  Sex: Female

DRUGS (2)
  1. AMPICILLIN [Suspect]
     Indication: PRODUCT USED FOR UNKNOWN INDICATION
     Dosage: TOPICAL
  2. SULBACTAM [Suspect]
     Indication: PRODUCT USED FOR UNKNOWN INDICATION

REACTIONS (6)
  - Dermatitis contact [None]
  - Reaction to preservatives [None]
  - Drug hypersensitivity [None]
  - Urticaria contact [None]
  - Dermatitis contact [None]
  - Occupational exposure to product [None]
